FAERS Safety Report 10553506 (Version 1)
Quarter: 2014Q4

REPORT INFORMATION
  Report Type: Spontaneous
  Country: GB (occurrence: None)
  Receive Date: 20141028
  Receipt Date: 20141028
  Transmission Date: 20150529
  Serious: Yes (Other)
  Sender: FDA-Public Use
  Company Number: GB-DEXPHARM-20140660

PATIENT
  Age: 80 Year
  Sex: Male

DRUGS (2)
  1. ALLOPURINOL. [Concomitant]
     Active Substance: ALLOPURINOL
  2. OMEPRAZOLE. [Suspect]
     Active Substance: OMEPRAZOLE
     Indication: DYSPEPSIA
     Route: 048
     Dates: start: 20040310, end: 20120704

REACTIONS (7)
  - Sinus congestion [None]
  - Headache [None]
  - Pruritus genital [None]
  - Diarrhoea [None]
  - Nasal dryness [None]
  - Nasal congestion [None]
  - Productive cough [None]
